FAERS Safety Report 8585475-9 (Version None)
Quarter: 2012Q3

REPORT INFORMATION
  Report Type: 
  Country: None (occurrence: None)
  Receive Date: 20120810
  Receipt Date: 20111208
  Transmission Date: 20120928
  Serious: No
  Sender: FDA-Public Use
  Company Number: US-GLAXOSMITHKLINE-A0957340A

PATIENT
  Sex: Male

DRUGS (3)
  1. AZILECT [Concomitant]
  2. REQUIP XL [Suspect]
     Indication: PRODUCT USED FOR UNKNOWN INDICATION
     Dosage: 8MG PER DAY
     Route: 048
     Dates: start: 20100120, end: 20100121
  3. FUROSEMIDE [Concomitant]

REACTIONS (1)
  - ALLERGY TO CHEMICALS [None]
